FAERS Safety Report 11002901 (Version 1)
Quarter: 2015Q2

REPORT INFORMATION
  Report Type: Spontaneous
  Country: FR (occurrence: FR)
  Receive Date: 20150408
  Receipt Date: 20150408
  Transmission Date: 20150821
  Serious: Yes (Death, Hospitalization, Disabling)
  Sender: FDA-Public Use
  Company Number: FR-INTERMUNE, INC.-201504IM013008

PATIENT
  Sex: Male

DRUGS (8)
  1. ATROVENT [Concomitant]
     Active Substance: IPRATROPIUM BROMIDE
     Indication: IDIOPATHIC PULMONARY FIBROSIS
  2. ESOMEPRAZOLE [Concomitant]
     Active Substance: ESOMEPRAZOLE
     Indication: GASTRIC DISORDER
  3. INNOVAIR [Concomitant]
     Active Substance: BECLOMETHASONE DIPROPIONATE\FORMOTEROL
     Indication: IDIOPATHIC PULMONARY FIBROSIS
  4. ESBRIET [Suspect]
     Active Substance: PIRFENIDONE
     Dosage: 1602 MG
     Route: 048
     Dates: end: 20150311
  5. ESBRIET [Suspect]
     Active Substance: PIRFENIDONE
     Indication: IDIOPATHIC PULMONARY FIBROSIS
     Route: 048
     Dates: start: 20140417
  6. SPIRIVA [Concomitant]
     Active Substance: TIOTROPIUM BROMIDE MONOHYDRATE
     Indication: IDIOPATHIC PULMONARY FIBROSIS
  7. AERIUS [Concomitant]
     Active Substance: DESLORATADINE
     Indication: IDIOPATHIC PULMONARY FIBROSIS
  8. FLECAIN [Concomitant]
     Indication: HYPERTENSION

REACTIONS (7)
  - Weight decreased [None]
  - Dizziness [None]
  - Gastritis [None]
  - Rhinitis [Unknown]
  - Idiopathic pulmonary fibrosis [Fatal]
  - Constipation [None]
  - Erythema [None]
